FAERS Safety Report 10402652 (Version 1)
Quarter: 2014Q3

REPORT INFORMATION
  Report Type: Spontaneous
  Country: CA (occurrence: None)
  Receive Date: 20140821
  Receipt Date: 20140821
  Transmission Date: 20150326
  Serious: Yes (Other)
  Sender: FDA-Public Use
  Company Number: None

PATIENT
  Age: 47 Year
  Sex: Female
  Weight: 102.06 kg

DRUGS (2)
  1. CANNABIS [Suspect]
     Active Substance: CANNABIS SATIVA SUBSP. INDICA TOP
     Indication: ANXIETY
     Dosage: A FEW DROPS, AS NEEDED, TAKEN UNDER THE TONGUE
     Dates: start: 20140813, end: 20140818
  2. CANNABIS [Suspect]
     Active Substance: CANNABIS SATIVA SUBSP. INDICA TOP
     Indication: INSOMNIA
     Dosage: A FEW DROPS, AS NEEDED, TAKEN UNDER THE TONGUE
     Dates: start: 20140813, end: 20140818

REACTIONS (7)
  - Panic attack [None]
  - Hallucination [None]
  - Disturbance in attention [None]
  - Drug ineffective [None]
  - Anxiety [None]
  - Headache [None]
  - Abnormal dreams [None]

NARRATIVE: CASE EVENT DATE: 20140818
